FAERS Safety Report 7510270-9 (Version None)
Quarter: 2011Q2

REPORT INFORMATION
  Report Type: 
  Country: None (occurrence: None)
  Receive Date: 20110527
  Receipt Date: 20091106
  Transmission Date: 20111010
  Serious: Yes (Disabling)
  Sender: FDA-Public Use
  Company Number: US-BAYER-200938578NA

PATIENT
  Sex: Female

DRUGS (1)
  1. AVELOX [Suspect]
     Indication: ASTHMA
     Dates: start: 20091103, end: 20091104

REACTIONS (5)
  - DISCOMFORT [None]
  - WEIGHT BEARING DIFFICULTY [None]
  - PAIN IN EXTREMITY [None]
  - ABASIA [None]
  - COORDINATION ABNORMAL [None]
